FAERS Safety Report 24192740 (Version 1)
Quarter: 2024Q3

REPORT INFORMATION
  Report Type: Spontaneous
  Country: US (occurrence: US)
  Receive Date: 20240809
  Receipt Date: 20240809
  Transmission Date: 20241017
  Serious: Yes (Other)
  Sender: AVADEL CNS PHARMA
  Company Number: US-AVADEL CNS PHARMACEUTICALS, LLC-2024AVA01383

PATIENT
  Sex: Female

DRUGS (1)
  1. LUMRYZ [Suspect]
     Active Substance: SODIUM OXYBATE
     Dosage: UNK

REACTIONS (14)
  - Delusion [Unknown]
  - Somnolence [Unknown]
  - Hallucination [Unknown]
  - Psychotic disorder [Unknown]
  - Feeling abnormal [Unknown]
  - Abnormal behaviour [Unknown]
  - Sleep talking [Unknown]
  - Inappropriate affect [Unknown]
  - Crying [Unknown]
  - Mental disorder [Unknown]
  - Emotional poverty [Unknown]
  - Discoloured vomit [Unknown]
  - Agitation [Unknown]
  - Confusional state [Unknown]
